FAERS Safety Report 7496477-8 (Version None)
Quarter: 2011Q2

REPORT INFORMATION
  Report Type: 
  Country: None (occurrence: None)
  Receive Date: 20110523
  Receipt Date: 20110516
  Transmission Date: 20111010
  Serious: Yes (Hospitalization, Other)
  Sender: FDA-Public Use
  Company Number: ZA-SANOFI-AVENTIS-2011SA030887

PATIENT
  Sex: Female

DRUGS (2)
  1. ZOLPIDEM [Suspect]
     Route: 065
  2. AMITRIPTYLINE HCL [Suspect]
     Route: 065

REACTIONS (2)
  - APNOEA [None]
  - CONFUSIONAL STATE [None]
